FAERS Safety Report 22749814 (Version 4)
Quarter: 2024Q1

REPORT INFORMATION
  Report Type: Report from Study
  Country: BR (occurrence: BR)
  Receive Date: 20230726
  Receipt Date: 20240131
  Transmission Date: 20240410
  Serious: Yes (Other)
  Sender: FDA-Public Use
  Company Number: BR-TAKEDA-2023TUS072798

PATIENT
  Age: 21 Year
  Sex: Male
  Weight: 60 kg

DRUGS (7)
  1. HEMO-8R [Suspect]
     Active Substance: ANTIHEMOPHILIC FACTOR, HUMAN RECOMBINANT
     Indication: Factor VIII deficiency
     Dosage: UNK
     Route: 042
     Dates: start: 20160628
  2. HEMO-8R [Suspect]
     Active Substance: ANTIHEMOPHILIC FACTOR, HUMAN RECOMBINANT
     Indication: Prophylaxis
  3. PAROXETINE [Concomitant]
     Active Substance: PAROXETINE
     Indication: Anxiety
     Dosage: 20 MILLIGRAM, QD
     Route: 065
     Dates: start: 2022, end: 20220617
  4. SERTRALINE [Concomitant]
     Active Substance: SERTRALINE HYDROCHLORIDE
     Indication: Anxiety
     Dosage: 50 MILLIGRAM, QD
     Route: 065
     Dates: start: 20220628, end: 20220708
  5. PENICILLIN G BENZATHINE [Concomitant]
     Active Substance: PENICILLIN G BENZATHINE
     Indication: Syphilis
     Dosage: 24000 INTERNATIONAL UNIT, 1/WEEK
     Route: 065
     Dates: start: 202204, end: 202204
  6. OMEPRAZOLE [Concomitant]
     Active Substance: OMEPRAZOLE
     Indication: Gastrointestinal haemorrhage
     Dosage: 20 MILLIGRAM, QD
     Route: 065
     Dates: start: 202207, end: 2022
  7. IRON POLYMALTOSE [Concomitant]
     Active Substance: IRON POLYMALTOSE
     Indication: Anaemia
     Dosage: UNK UNK, QD
     Route: 065
     Dates: start: 20220715

REACTIONS (1)
  - Syphilis [Recovering/Resolving]

NARRATIVE: CASE EVENT DATE: 20210414
